FAERS Safety Report 9723236 (Version 1)
Quarter: 2013Q4

REPORT INFORMATION
  Report Type: Spontaneous
  Country: IN (occurrence: IN)
  Receive Date: 20131202
  Receipt Date: 20131202
  Transmission Date: 20140711
  Serious: Yes (Hospitalization, Other)
  Sender: FDA-Public Use
  Company Number: IN-009507513-1311IND011035

PATIENT
  Age: 20 Year
  Sex: Female
  Weight: 20 kg

DRUGS (9)
  1. ROCURONIUM BROMIDE [Suspect]
     Indication: ENDOTRACHEAL INTUBATION
  2. THIOPENTAL SODIUM [Suspect]
     Indication: REDUCTION OF INCREASED INTRACRANIAL PRESSURE
     Route: 042
  3. THIOPENTAL SODIUM [Suspect]
     Indication: HYPERVENTILATION
  4. SEVOFLURANE [Suspect]
     Indication: DEVICE RELATED SEPSIS
  5. SEVOFLURANE [Suspect]
     Indication: MAINTENANCE OF ANAESTHESIA
  6. OXYGEN [Suspect]
     Indication: MAINTENANCE OF ANAESTHESIA
  7. NITROUS OXIDE [Suspect]
     Indication: MAINTENANCE OF ANAESTHESIA
  8. FENTANYL [Suspect]
     Indication: MAINTENANCE OF ANAESTHESIA
  9. VECURONIUM BROMIDE [Suspect]
     Indication: MAINTENANCE OF ANAESTHESIA

REACTIONS (4)
  - Obstructive airways disorder [Not Recovered/Not Resolved]
  - Endotracheal intubation [Not Recovered/Not Resolved]
  - Tracheostomy [Not Recovered/Not Resolved]
  - Pulmonary function test decreased [Not Recovered/Not Resolved]
